FAERS Safety Report 8471046-1 (Version None)
Quarter: 2012Q2

REPORT INFORMATION
  Report Type: 
  Country: None (occurrence: None)
  Receive Date: 20120627
  Receipt Date: 20120620
  Transmission Date: 20120825
  Serious: Yes (Other)
  Sender: FDA-Public Use
  Company Number: US-BAYER-2012-061311

PATIENT
  Sex: Female

DRUGS (28)
  1. LANTUS [Concomitant]
     Indication: DIABETES MELLITUS
     Dosage: 20 UNITS BID
  2. LYRICA [Concomitant]
     Indication: COMPLEX REGIONAL PAIN SYNDROME
     Dosage: 150 MG, BID
  3. LYRICA [Concomitant]
  4. PREVACID [Concomitant]
     Indication: GASTROOESOPHAGEAL REFLUX DISEASE
     Dosage: 30 MG, QD
  5. MULTI-VITAMINS [Concomitant]
     Dosage: 1 DF, QD
  6. CIPROFLOXACIN [Suspect]
  7. BENAZEPRIL [Concomitant]
     Indication: BLOOD PRESSURE ABNORMAL
     Dosage: 20 MG, QD
  8. ALBUTEROL [Concomitant]
     Indication: ASTHMA
     Dosage: 2.5/3.0 ML
  9. VITAMIN D [Concomitant]
  10. CALCIUM [Concomitant]
     Dosage: 1500 MG, QD
  11. DIETARY SUPPLEMENT [Concomitant]
     Dosage: 980 MG, QD
  12. BYSTOLIC [Concomitant]
     Indication: HYPERTENSION
     Dosage: 20 MG, QD
  13. SENNA-MINT WAF [Concomitant]
     Dosage: 2-3 DF PER DAY
  14. SPIRIVA [Concomitant]
     Indication: ASTHMA
     Dosage: 18 MCG/24HR, UNK
  15. CENTIRIZINE HCL [Concomitant]
     Indication: MULTIPLE ALLERGIES
     Dosage: 10 MG, QD
  16. ADVAIR DISKUS 100/50 [Concomitant]
     Indication: ASTHMA
     Dosage: 500 MCG/24HR, BID
  17. ADVAIR DISKUS 100/50 [Concomitant]
     Indication: CHRONIC OBSTRUCTIVE PULMONARY DISEASE
  18. BETHANECHOL [Concomitant]
     Indication: NEUROGENIC BLADDER
     Dosage: 25 MG, BID
  19. HUMALOG [Concomitant]
     Indication: DIABETES MELLITUS
     Dosage: 14 UNITS BEFORE MEALS
  20. LEVOTHYROXINE SODIUM [Concomitant]
     Indication: HYPOTHYROIDISM
     Dosage: 0.75 MG, QD
  21. NORTRIPTYLINE HYDROCHLORIDE [Concomitant]
     Indication: COMPLEX REGIONAL PAIN SYNDROME
     Dosage: 1 OR 2 X 50 MG BEFORE BEDTIME, PRN
  22. SINGULAIR [Concomitant]
     Indication: ASTHMA
     Dosage: 10 MG, QD
  23. TRAVATAN [Concomitant]
     Indication: GLAUCOMA
     Dosage: 0.04% IN BOTH EYES
  24. ALPHAGAN [Concomitant]
     Indication: GLAUCOMA
     Dosage: UNK BOTH EYES, BID
     Route: 047
  25. FUROSEMIDE [Concomitant]
     Indication: CARDIAC FAILURE CONGESTIVE
     Dosage: 30 MG, BID
  26. LYRICA [Concomitant]
     Indication: PAIN
  27. MORPHINE [Concomitant]
     Indication: PAIN
     Dosage: 30 MG, PRN AT NIGHT
  28. PREDNISONE TAB [Concomitant]
     Indication: ASTHMA
     Dosage: 10 MG, QD

REACTIONS (1)
  - ANAPHYLACTIC REACTION [None]
